FAERS Safety Report 6681213-5 (Version None)
Quarter: 2010Q2

REPORT INFORMATION
  Report Type: 
  Country: None (occurrence: None)
  Receive Date: 20100414
  Receipt Date: 20090506
  Transmission Date: 20101027
  Serious: No
  Sender: FDA-Public Use
  Company Number: US-KINGPHARMUSA00001-K200900561

PATIENT
  Sex: Female

DRUGS (1)
  1. SKELAXIN [Suspect]
     Indication: PAIN
     Dosage: 800 MG, TID

REACTIONS (1)
  - DRUG INEFFECTIVE [None]
